FAERS Safety Report 20354470 (Version 2)
Quarter: 2023Q1

REPORT INFORMATION
  Report Type: Spontaneous
  Country: GB (occurrence: GB)
  Receive Date: 20220120
  Receipt Date: 20230320
  Transmission Date: 20230417
  Serious: Yes (Other)
  Sender: FDA-Public Use
  Company Number: None

PATIENT
  Age: 32 Year
  Sex: Female
  Weight: 66 kg

DRUGS (5)
  1. ELOCON [Suspect]
     Active Substance: MOMETASONE FUROATE
     Indication: Eczema
     Dosage: UNK
     Route: 061
     Dates: start: 20141010, end: 20190904
  2. EUMOVATE [Suspect]
     Active Substance: CLOBETASONE BUTYRATE
     Indication: Eczema
     Dosage: UNK
     Route: 061
     Dates: start: 20050512, end: 20190904
  3. HYDROCORTISONE [Suspect]
     Active Substance: HYDROCORTISONE
     Indication: Eczema
     Dosage: UNK
     Route: 061
     Dates: start: 19870308, end: 20190904
  4. PREDNISONE [Suspect]
     Active Substance: PREDNISONE
     Indication: Ill-defined disorder
     Dosage: UNK
     Route: 048
     Dates: start: 20190201, end: 20190731
  5. PROTOPIC [Suspect]
     Active Substance: TACROLIMUS
     Indication: Ill-defined disorder
     Dosage: UNK
     Route: 061
     Dates: start: 20190715, end: 20190815

REACTIONS (13)
  - Erythema [Not Recovered/Not Resolved]
  - Pruritus [Not Recovered/Not Resolved]
  - Insomnia [Not Recovered/Not Resolved]
  - Alopecia [Recovering/Resolving]
  - Weight decreased [Recovering/Resolving]
  - Temperature regulation disorder [Not Recovered/Not Resolved]
  - Fatigue [Not Recovered/Not Resolved]
  - Aversion [Not Recovered/Not Resolved]
  - Aversion [Not Recovered/Not Resolved]
  - Skin erosion [Not Recovered/Not Resolved]
  - Night sweats [Recovered/Resolved]
  - Lymphadenopathy [Not Recovered/Not Resolved]
  - Medication error [Unknown]

NARRATIVE: CASE EVENT DATE: 20170815
